FAERS Safety Report 8834423 (Version 2)
Quarter: 2013Q3

REPORT INFORMATION
  Report Type: Spontaneous
  Country: CA (occurrence: None)
  Receive Date: 20120912
  Receipt Date: 20130911
  Transmission Date: 20140515
  Serious: Yes (Other)
  Sender: FDA-Public Use
  Company Number: AECAN201200436

PATIENT
  Age: 67 Year
  Sex: Male

DRUGS (1)
  1. IGIVNEX [Suspect]
     Indication: POLYNEUROPATHY
     Route: 042
     Dates: start: 20120726, end: 20120726

REACTIONS (5)
  - Angioedema [None]
  - Urticaria [None]
  - Pruritus [None]
  - Hypersensitivity [None]
  - No reaction on previous exposure to drug [None]
